FAERS Safety Report 9218973 (Version 3)
Quarter: 2013Q4

REPORT INFORMATION
  Report Type: Spontaneous
  Country: GB (occurrence: GB)
  Receive Date: 20130409
  Receipt Date: 20131209
  Transmission Date: 20140711
  Serious: Yes (Other)
  Sender: FDA-Public Use
  Company Number: GB-JNJFOC-20130400900

PATIENT
  Age: 40 Year
  Sex: Male
  Weight: 109 kg

DRUGS (3)
  1. KETOCONAZOLE 2% [Suspect]
     Indication: FUNGAL SKIN INFECTION
     Route: 061
     Dates: start: 20130321
  2. HYDROCORTISONE [Concomitant]
     Indication: PRODUCT USED FOR UNKNOWN INDICATION
     Route: 065
     Dates: start: 20130308, end: 20130315
  3. FEXOFENADINE [Concomitant]
     Indication: PRODUCT USED FOR UNKNOWN INDICATION
     Route: 065
     Dates: start: 20130308

REACTIONS (3)
  - Blister [Recovering/Resolving]
  - Erythema [Unknown]
  - Rash [Recovering/Resolving]
